FAERS Safety Report 8175366-X (Version None)
Quarter: 2012Q1

REPORT INFORMATION
  Report Type: 
  Country: None (occurrence: None)
  Receive Date: 20120229
  Receipt Date: 20120222
  Transmission Date: 20120608
  Serious: Yes (Death, Hospitalization, Other)
  Sender: FDA-Public Use
  Company Number: US-BAXTER-2012BH004162

PATIENT
  Sex: Female

DRUGS (3)
  1. DIANEAL [Suspect]
     Indication: PERITONEAL DIALYSIS
     Route: 033
     Dates: end: 20120211
  2. DIANEAL [Suspect]
     Indication: PERITONEAL DIALYSIS
     Route: 033
     Dates: end: 20120211
  3. GENTAMICIN [Suspect]
     Indication: COLONOSCOPY
     Route: 033
     Dates: start: 20120208

REACTIONS (7)
  - POLYP [None]
  - HYPOGLYCAEMIA [None]
  - MENTAL STATUS CHANGES [None]
  - BLOOD PRESSURE INCREASED [None]
  - CARDIAC ARREST [None]
  - UNRESPONSIVE TO STIMULI [None]
  - PERITONITIS BACTERIAL [None]
